FAERS Safety Report 4957801-0 (Version None)
Quarter: 2006Q1

REPORT INFORMATION
  Report Type: 
  Country: None (occurrence: None)
  Receive Date: 20060324
  Receipt Date: 20060314
  Transmission Date: 20060701
  Serious: Yes (Other)
  Sender: FDA-Public Use
  Company Number: 2006035688

PATIENT
  Age: 73 Year
  Sex: Female
  Weight: 92.5338 kg

DRUGS (3)
  1. CELEBREX [Suspect]
     Indication: ARTHRITIS
     Dosage: 200 MG (200 MG, 1 IN 1 D)
     Dates: start: 20000101
  2. CELEBREX [Suspect]
     Indication: MENISCUS LESION
     Dosage: 200 MG (200 MG, 1 IN 1 D)
     Dates: start: 20000101
  3. LIPITOR [Suspect]
     Indication: BLOOD CHOLESTEROL INCREASED
     Dosage: 20 MG (20 MG, 1 IN 1 D)
     Dates: start: 20000101

REACTIONS (18)
  - ARTHRALGIA [None]
  - ARTHRITIS [None]
  - ARTHROPATHY [None]
  - ASTHENIA [None]
  - BALANCE DISORDER [None]
  - BENIGN UTERINE NEOPLASM [None]
  - BLOOD PRESSURE INCREASED [None]
  - BODY HEIGHT DECREASED [None]
  - DIARRHOEA [None]
  - DRUG EFFECT DECREASED [None]
  - FEAR [None]
  - GASTROINTESTINAL NEOPLASM [None]
  - HIGH DENSITY LIPOPROTEIN DECREASED [None]
  - IMPAIRED HEALING [None]
  - INSOMNIA [None]
  - JOINT SWELLING [None]
  - PAIN [None]
  - TOOTHACHE [None]
